FAERS Safety Report 12729280 (Version 1)
Quarter: 2016Q3

REPORT INFORMATION
  Report Type: Spontaneous
  Country: DK (occurrence: DK)
  Receive Date: 20160909
  Receipt Date: 20160909
  Transmission Date: 20161109
  Serious: Yes (Other)
  Sender: FDA-Public Use
  Company Number: DK-PFIZER INC-2016376855

PATIENT
  Age: 85 Year
  Sex: Male

DRUGS (5)
  1. ANCOZAN COMP [Concomitant]
     Active Substance: HYDROCHLOROTHIAZIDE\LOSARTAN POTASSIUM
     Dosage: UNK
  2. HJERTEMAGNYL /00002701/ [Concomitant]
     Active Substance: ASPIRIN
     Dosage: 75 MG, UNK
  3. LYRICA [Suspect]
     Active Substance: PREGABALIN
     Indication: PAIN
     Dosage: 150 MG, 2X/DAY
     Dates: start: 200501
  4. MAGNESIUM [Concomitant]
     Active Substance: MAGNESIUM
     Dosage: 375 MG, UNK
     Dates: start: 2010
  5. VITAMIN D3 [Concomitant]
     Active Substance: CHOLECALCIFEROL
     Dosage: UNK
     Dates: start: 2008

REACTIONS (21)
  - Loss of consciousness [Unknown]
  - Fracture [Unknown]
  - Weight increased [Not Recovered/Not Resolved]
  - Drug effect decreased [Not Recovered/Not Resolved]
  - Fall [Unknown]
  - Hunger [Not Recovered/Not Resolved]
  - Pain [Not Recovered/Not Resolved]
  - Abdominal pain upper [Not Recovered/Not Resolved]
  - Dizziness [Not Recovered/Not Resolved]
  - Muscle spasms [Unknown]
  - Product use issue [Unknown]
  - Intentional overdose [Unknown]
  - Pain in extremity [Not Recovered/Not Resolved]
  - Somnolence [Not Recovered/Not Resolved]
  - Arthralgia [Not Recovered/Not Resolved]
  - Limb discomfort [Not Recovered/Not Resolved]
  - Fatigue [Not Recovered/Not Resolved]
  - Musculoskeletal pain [Unknown]
  - Headache [Not Recovered/Not Resolved]
  - Pain in extremity [Unknown]
  - Malaise [Not Recovered/Not Resolved]
